FAERS Safety Report 9378022 (Version 3)
Quarter: 2013Q3

REPORT INFORMATION
  Report Type: Spontaneous
  Country: US (occurrence: US)
  Receive Date: 20130701
  Receipt Date: 20130903
  Transmission Date: 20140515
  Serious: Yes (Death)
  Sender: FDA-Public Use
  Company Number: US-UCBSA-069273

PATIENT
  Sex: Male

DRUGS (1)
  1. VIMPAT [Suspect]
     Indication: CONVULSION
     Dosage: DRUG STRENGTH: 200 MG (NOT HAD HIS MEDICATION IN ABOUT 2 MONTHS)

REACTIONS (4)
  - Myocardial infarction [Fatal]
  - Arteriosclerosis [Unknown]
  - Convulsion [Not Recovered/Not Resolved]
  - Drug dose omission [Unknown]
